FAERS Safety Report 25363713 (Version 1)
Quarter: 2025Q2

REPORT INFORMATION
  Report Type: Spontaneous
  Country: PL (occurrence: PL)
  Receive Date: 20250527
  Receipt Date: 20250527
  Transmission Date: 20250717
  Serious: Yes (Other)
  Sender: SAMSUNG BIOEPIS
  Company Number: PL-SAMSUNG BIOEPIS-SB-2025-17816

PATIENT
  Age: 11 Year
  Sex: Male

DRUGS (1)
  1. ADALIMUMAB [Suspect]
     Active Substance: ADALIMUMAB
     Indication: Crohn^s disease
     Dates: start: 202208

REACTIONS (3)
  - Abscess [Recovered/Resolved]
  - Foreign body in gastrointestinal tract [Recovered/Resolved]
  - Fistula inflammation [Recovered/Resolved]
